FAERS Safety Report 23306209 (Version 1)
Quarter: 2023Q4

REPORT INFORMATION
  Report Type: Spontaneous
  Country: US (occurrence: None)
  Receive Date: 20231218
  Receipt Date: 20231218
  Transmission Date: 20240109
  Serious: No
  Sender: FDA-Public Use
  Company Number: US-ARIS GLOBAL-SUP202305-001839

PATIENT
  Age: 61 Year
  Sex: Female
  Weight: 90.71 kg

DRUGS (1)
  1. TROKENDI XR [Suspect]
     Active Substance: TOPIRAMATE
     Indication: Migraine

REACTIONS (4)
  - Tinnitus [Recovering/Resolving]
  - Nasal discomfort [Recovering/Resolving]
  - Oropharyngeal discomfort [Recovering/Resolving]
  - Migraine [Recovering/Resolving]
